FAERS Safety Report 23131454 (Version 7)
Quarter: 2024Q4

REPORT INFORMATION
  Report Type: Report from Study
  Country: KR (occurrence: KR)
  Receive Date: 20231031
  Receipt Date: 20241216
  Transmission Date: 20250115
  Serious: Yes (Death, Hospitalization)
  Sender: ROCHE
  Company Number: KR-ROCHE-3446198

PATIENT
  Age: 54 Year
  Sex: Male
  Weight: 56.4 kg

DRUGS (50)
  1. BEVACIZUMAB [Suspect]
     Active Substance: BEVACIZUMAB
     Indication: Colorectal cancer metastatic
     Route: 042
     Dates: start: 20231013, end: 20231013
  2. ERLOTINIB [Suspect]
     Active Substance: ERLOTINIB
     Indication: Colorectal cancer metastatic
     Route: 048
     Dates: start: 20231013, end: 20231027
  3. MUCOBARRIER [Concomitant]
     Route: 048
     Dates: start: 20230404, end: 20231028
  4. DICLOMED GARGLE [Concomitant]
     Dates: start: 20230516, end: 20231028
  5. TARGIN PR [Concomitant]
     Dosage: 5/2.5MG
     Route: 048
     Dates: start: 20230919, end: 20231016
  6. DULACKHAN EASY [Concomitant]
     Route: 048
     Dates: start: 20231013, end: 20231113
  7. TRENTAL [Concomitant]
     Active Substance: PENTOXIFYLLINE
     Route: 048
     Dates: start: 20231023, end: 20231028
  8. TRENTAL [Concomitant]
     Active Substance: PENTOXIFYLLINE
     Route: 048
     Dates: start: 20231129, end: 20231205
  9. TRANEXAMIC ACID [Concomitant]
     Active Substance: TRANEXAMIC ACID
     Dosage: 2 AMPULE
     Route: 042
     Dates: start: 20231104, end: 20231104
  10. TRANEXAMIC ACID [Concomitant]
     Active Substance: TRANEXAMIC ACID
     Route: 042
     Dates: start: 20231104, end: 20231114
  11. TRANEXAMIC ACID [Concomitant]
     Active Substance: TRANEXAMIC ACID
     Route: 042
     Dates: start: 20231129, end: 20231129
  12. TRANEXAMIC ACID [Concomitant]
     Active Substance: TRANEXAMIC ACID
     Route: 042
     Dates: start: 20231207, end: 20231208
  13. OROPHEROL [Concomitant]
     Dosage: 3CAPSULE
     Route: 048
     Dates: start: 20231108, end: 20231208
  14. LANSOPRAZOLE [Concomitant]
     Active Substance: LANSOPRAZOLE
     Route: 048
     Dates: start: 20231108, end: 20231208
  15. SYNTHROID [Concomitant]
     Active Substance: LEVOTHYROXINE SODIUM
     Dosage: 125MCG
     Route: 048
     Dates: start: 20231108, end: 20231208
  16. SYNTHROID [Concomitant]
     Active Substance: LEVOTHYROXINE SODIUM
     Dates: end: 20231104
  17. EXFORGE [Concomitant]
     Active Substance: AMLODIPINE BESYLATE\VALSARTAN
     Dosage: 5/80MG
     Route: 048
     Dates: start: 20231108, end: 20231208
  18. RAMOSETRON HYDROCHLORIDE [Concomitant]
     Active Substance: RAMOSETRON HYDROCHLORIDE
     Route: 042
     Dates: start: 20231110, end: 20231110
  19. METOCLOPRAMIDE HYDROCHLORIDE [Concomitant]
     Active Substance: METOCLOPRAMIDE HYDROCHLORIDE
     Route: 042
     Dates: start: 20231110, end: 20231114
  20. CENTIREX ADVANCE [Concomitant]
     Route: 048
     Dates: start: 20231115, end: 20231208
  21. CEFDITOREN PIVOXIL [Concomitant]
     Active Substance: CEFDITOREN PIVOXIL
     Route: 048
     Dates: start: 20231129, end: 20231205
  22. NOLTEC [Concomitant]
     Route: 048
     Dates: start: 20231129, end: 20231205
  23. CYCIN [Concomitant]
     Route: 042
     Dates: start: 20231207, end: 20231208
  24. CALCIUM POLYSTYRENE SULFONATE [Concomitant]
     Active Substance: CALCIUM POLYSTYRENE SULFONATE
     Route: 054
     Dates: start: 20231207, end: 20231207
  25. MINOCIN [Concomitant]
     Active Substance: MINOCYCLINE HYDROCHLORIDE
     Dosage: 50MG 2CAPSULE
     Route: 048
     Dates: start: 20231013, end: 20231028
  26. FENTADUR [Concomitant]
     Dosage: 25 UG/H
     Route: 061
     Dates: start: 20231020, end: 20231106
  27. FENTADUR [Concomitant]
     Dosage: 50 UG/H
     Route: 061
     Dates: start: 20231107, end: 20231208
  28. FENTADUR [Concomitant]
     Dosage: 12 UG/H
     Route: 061
     Dates: start: 20231114, end: 20231206
  29. PELUBI CR [Concomitant]
     Route: 048
     Dates: start: 20231023, end: 20231028
  30. BACTACIN (SOUTH KOREA) [Concomitant]
     Dosage: 2 VIAL
     Route: 042
     Dates: start: 20231104, end: 20231106
  31. BACTACIN (SOUTH KOREA) [Concomitant]
     Dosage: 2 VIAL
     Route: 042
     Dates: start: 20231129, end: 20231129
  32. BACTACIN (SOUTH KOREA) [Concomitant]
     Dosage: 2 VIAL
     Route: 042
     Dates: start: 20231207, end: 20231208
  33. TRAMADOL HYDROCHLORIDE [Concomitant]
     Active Substance: TRAMADOL HYDROCHLORIDE
     Route: 042
     Dates: start: 20231104, end: 20231110
  34. MEPERIDINE HYDROCHLORIDE [Concomitant]
     Active Substance: MEPERIDINE HYDROCHLORIDE
     Route: 042
     Dates: start: 20231106, end: 20231113
  35. DICLOMED GARGLE [Concomitant]
     Dates: start: 20231107, end: 20231208
  36. CHLORHEXIDINE GLUCONATE [Concomitant]
     Active Substance: CHLORHEXIDINE GLUCONATE
     Dates: start: 20231107, end: 20231114
  37. CEFAZOLIN [Concomitant]
     Active Substance: CEFAZOLIN
     Dosage: 2 VIAL
     Route: 042
     Dates: start: 20231107, end: 20231107
  38. DILID [Concomitant]
     Route: 042
     Dates: start: 20231107, end: 20231114
  39. DILID [Concomitant]
     Route: 042
     Dates: start: 20231114, end: 20231114
  40. CEFTRIAXONE SODIUM [Concomitant]
     Active Substance: CEFTRIAXONE SODIUM
     Route: 042
     Dates: start: 20231108, end: 20231114
  41. FLAGYL [Concomitant]
     Active Substance: METRONIDAZOLE\METRONIDAZOLE HYDROCHLORIDE
     Route: 048
     Dates: start: 20231108, end: 20231115
  42. DEXAMETHASONE [Concomitant]
     Active Substance: DEXAMETHASONE
     Dosage: 2 T
     Route: 048
     Dates: start: 20231108, end: 20231206
  43. DEXKETOPROFEN TROMETAMOL [Concomitant]
     Active Substance: DEXKETOPROFEN TROMETAMOL
     Route: 042
     Dates: start: 20231110, end: 20231117
  44. PROPACETAMOL HYDROCHLORIDE [Concomitant]
     Active Substance: PROPACETAMOL HYDROCHLORIDE
     Route: 042
     Dates: start: 20231114, end: 20231117
  45. AMOCLAN DUO [Concomitant]
     Dosage: 2T
     Route: 048
     Dates: start: 20231115, end: 20231206
  46. FOTAGEL [Concomitant]
     Route: 048
     Dates: start: 20231116, end: 20231117
  47. MORPHINE SULFATE [Concomitant]
     Active Substance: MORPHINE SULFATE
     Route: 042
     Dates: start: 20231207, end: 20231208
  48. TRANEXAMIC ACID [Concomitant]
     Active Substance: TRANEXAMIC ACID
     Route: 042
     Dates: start: 20231129, end: 20231129
  49. TRANEXAMIC ACID [Concomitant]
     Active Substance: TRANEXAMIC ACID
     Route: 042
     Dates: start: 20231207, end: 20231208
  50. EXFORTE [Concomitant]
     Dates: end: 20231104

REACTIONS (2)
  - Haemorrhage [Fatal]
  - Nausea [Recovered/Resolved]

NARRATIVE: CASE EVENT DATE: 20231017
